FAERS Safety Report 8190948-7 (Version None)
Quarter: 2012Q1

REPORT INFORMATION
  Report Type: 
  Country: None (occurrence: None)
  Receive Date: 20120307
  Receipt Date: 20120224
  Transmission Date: 20120608
  Serious: Yes (Death, Life-Threatening)
  Sender: FDA-Public Use
  Company Number: FR-ACTELION-A-CH2012-61674

PATIENT
  Sex: Male

DRUGS (11)
  1. PAROXETINE HYDROCHLORIDE [Suspect]
     Dosage: UNK
     Dates: start: 20120110, end: 20120118
  2. ALFUZOSIN HCL [Suspect]
     Dosage: UNK
     Dates: start: 20111208, end: 20120118
  3. XANAX [Suspect]
     Dosage: UNK
     Dates: start: 20120107, end: 20120118
  4. PREDNISOLONE [Concomitant]
     Dosage: UNK
     Dates: start: 20111201, end: 20120121
  5. TRACLEER [Suspect]
     Indication: PULMONARY ARTERIAL HYPERTENSION
     Dosage: UNK
     Route: 048
     Dates: start: 20111129, end: 20120120
  6. REVATIO [Suspect]
     Dosage: UNK
     Dates: start: 20120115, end: 20120120
  7. NEXIUM [Concomitant]
  8. PROSCAR [Suspect]
     Dosage: UNK
     Dates: start: 20120110, end: 20120118
  9. IMOVANE [Suspect]
     Dosage: UNK
     Dates: start: 20111201, end: 20120118
  10. NORFLOXACIN [Suspect]
     Dosage: UNK
     Dates: start: 20111213, end: 20120118
  11. PROCORALAN [Concomitant]

REACTIONS (7)
  - OESOPHAGEAL DISORDER [None]
  - OROPHARYNGEAL DISCOMFORT [None]
  - RASH ERYTHEMATOUS [None]
  - DERMATITIS BULLOUS [None]
  - CARDIO-RESPIRATORY ARREST [None]
  - TOXIC EPIDERMAL NECROLYSIS [None]
  - NIKOLSKY'S SIGN [None]
